FAERS Safety Report 11616242 (Version 1)
Quarter: 2015Q4

REPORT INFORMATION
  Report Type: Spontaneous
  Country: US (occurrence: US)
  Receive Date: 20151009
  Receipt Date: 20151009
  Transmission Date: 20160304
  Serious: No
  Sender: FDA-Public Use
  Company Number: US-BAYER-2015-440503

PATIENT
  Age: 76 Year
  Sex: Female
  Weight: 61.68 kg

DRUGS (2)
  1. MIRALAX [Suspect]
     Active Substance: POLYETHYLENE GLYCOL 3350
     Indication: COLONOSCOPY
     Dosage: WHOLE BOTTLE, ONCE
     Route: 048
     Dates: start: 20151006, end: 20151006
  2. DULCOLAX (DOCUSATE SODIUM) [Concomitant]
     Active Substance: DOCUSATE SODIUM
     Dosage: 2 DF, UNK
     Dates: start: 20151006

REACTIONS (3)
  - Intercepted drug prescribing error [None]
  - Vomiting [Recovered/Resolved]
  - Oesophageal pain [None]

NARRATIVE: CASE EVENT DATE: 20151006
